FAERS Safety Report 24466130 (Version 1)
Quarter: 2024Q4

REPORT INFORMATION
  Report Type: Spontaneous
  Country: US (occurrence: US)
  Receive Date: 20241018
  Receipt Date: 20241018
  Transmission Date: 20250115
  Serious: No
  Sender: ROCHE
  Company Number: US-ROCHE-3544254

PATIENT
  Sex: Female

DRUGS (2)
  1. XOLAIR [Suspect]
     Active Substance: OMALIZUMAB
     Indication: Urticaria
     Route: 058
  2. XOLAIR [Suspect]
     Active Substance: OMALIZUMAB

REACTIONS (8)
  - Off label use [Unknown]
  - Headache [Unknown]
  - Throat tightness [Unknown]
  - Dizziness [Unknown]
  - Sensory disturbance [Unknown]
  - Sensory loss [Unknown]
  - Facial paresis [Unknown]
  - Blood pressure fluctuation [Unknown]
